FAERS Safety Report 19705753 (Version 1)
Quarter: 2021Q3

REPORT INFORMATION
  Report Type: Report from Study
  Country: None (occurrence: US)
  Receive Date: 20210817
  Receipt Date: 20210817
  Transmission Date: 20211014
  Serious: Yes (Other)
  Sender: FDA-Public Use
  Company Number: US-ABBVIE-21K-163-4035668-00

PATIENT
  Sex: Male

DRUGS (2)
  1. HUMIRA [Suspect]
     Active Substance: ADALIMUMAB
     Indication: CROHN^S DISEASE
     Dosage: CITRATE FREE
     Route: 058
  2. HUMIRA [Suspect]
     Active Substance: ADALIMUMAB
     Dosage: CITRATE FREE
     Route: 058
     Dates: start: 202011

REACTIONS (5)
  - Polyp [Recovered/Resolved]
  - Upper respiratory tract infection [Recovered/Resolved]
  - Cholecystectomy [Recovered/Resolved]
  - Antibody test negative [Unknown]
  - Inflammation [Unknown]

NARRATIVE: CASE EVENT DATE: 2017
